FAERS Safety Report 4766565-5 (Version None)
Quarter: 2005Q3

REPORT INFORMATION
  Report Type: 
  Country: None (occurrence: None)
  Receive Date: 20050908
  Receipt Date: 20050817
  Transmission Date: 20060218
  Serious: Yes (Other)
  Sender: FDA-Public Use
  Company Number: 2005-131754-NL

PATIENT
  Sex: Female

DRUGS (4)
  1. REMERON [Suspect]
     Dosage: 15 MG BID ORAL
     Route: 048
     Dates: start: 20010927
  2. WELLBUTRIN SR [Suspect]
     Dosage: 150 MG BID ORAL
     Route: 048
     Dates: start: 20010309
  3. PROZAC [Suspect]
     Dosage: 20 MG DAILY ORAL
     Route: 048
     Dates: start: 20010801
  4. RITALIN [Suspect]
     Dosage: 5 MG DAILY ORAL
     Route: 048
     Dates: start: 20010928

REACTIONS (5)
  - CONDITION AGGRAVATED [None]
  - CONVULSION [None]
  - DEPRESSION [None]
  - FATIGUE [None]
  - GRAND MAL CONVULSION [None]
